FAERS Safety Report 8337460-X (Version None)
Quarter: 2012Q2

REPORT INFORMATION
  Report Type: 
  Country: None (occurrence: None)
  Receive Date: 20120504
  Receipt Date: 20120427
  Transmission Date: 20120825
  Serious: Yes (Hospitalization)
  Sender: FDA-Public Use
  Company Number: US-PFIZER INC-2012106252

PATIENT
  Age: 45 Year
  Sex: Male

DRUGS (5)
  1. CYTARABINE [Suspect]
     Indication: ACUTE MYELOID LEUKAEMIA
     Dosage: 43.02 MG, TOTAL
     Route: 042
     Dates: start: 20111224
  2. FLUCONAZOLE [Suspect]
     Indication: PROPHYLAXIS
  3. PIPERACILLIN [Suspect]
     Indication: PROPHYLAXIS
  4. SPRYCEL [Suspect]
     Indication: ACUTE MYELOID LEUKAEMIA
     Dosage: 1800 MG, TOTAL
     Route: 048
     Dates: start: 20111224
  5. ACYCLOVIR [Suspect]
     Indication: PROPHYLAXIS

REACTIONS (2)
  - ELECTROCARDIOGRAM QT PROLONGED [None]
  - FEBRILE NEUTROPENIA [None]
